FAERS Safety Report 9110076 (Version 1)
Quarter: 2013Q1

REPORT INFORMATION
  Report Type: Spontaneous
  Country: GB (occurrence: GB)
  Receive Date: 20130222
  Receipt Date: 20130222
  Transmission Date: 20140127
  Serious: Yes (Disabling)
  Sender: FDA-Public Use
  Company Number: GB-JNJFOC-20130207506

PATIENT
  Age: 74 Year
  Sex: Male
  Weight: 106.2 kg

DRUGS (10)
  1. XARELTO [Suspect]
     Indication: PRODUCT USED FOR UNKNOWN INDICATION
     Route: 065
     Dates: start: 20130124
  2. BISOPROLOL [Concomitant]
     Route: 065
     Dates: start: 20120904
  3. INFLUENZA VACCINE [Concomitant]
     Route: 065
     Dates: start: 20121117, end: 20121118
  4. VALSARTAN [Concomitant]
     Route: 065
     Dates: start: 20120904
  5. FLUDROXYCORTIDE [Concomitant]
     Route: 065
     Dates: start: 20130124
  6. LANSOPRAZOLE [Concomitant]
     Route: 065
     Dates: start: 20120904
  7. OILATUM [Concomitant]
     Route: 065
     Dates: start: 20130111
  8. PRAVASTATIN [Concomitant]
     Route: 065
     Dates: start: 20121130, end: 20130111
  9. ACETYLSALICYLIC ACID [Concomitant]
     Route: 065
     Dates: start: 20120904
  10. FLUCLOXACILLIN [Concomitant]
     Route: 065
     Dates: start: 20130111, end: 20130118

REACTIONS (1)
  - Non-cardiac chest pain [Recovered/Resolved]
